FAERS Safety Report 24685184 (Version 1)
Quarter: 2024Q4

REPORT INFORMATION
  Report Type: Spontaneous
  Country: AU (occurrence: AU)
  Receive Date: 20241202
  Receipt Date: 20241202
  Transmission Date: 20250115
  Serious: Yes (Hospitalization, Disabling, Other)
  Sender: Atnahs Healthcare
  Company Number: AU-ATNAHS-ATNAHS20240902514

PATIENT
  Age: 58 Year
  Sex: Male
  Weight: 65 kg

DRUGS (30)
  1. DIAZEPAM [Suspect]
     Active Substance: DIAZEPAM
     Indication: Anxiety
     Dosage: 5 MG AT NIGHT
     Route: 048
     Dates: start: 2018
  2. PROCHLORPERAZINE MALEATE [Suspect]
     Active Substance: PROCHLORPERAZINE MALEATE
     Indication: Nausea
     Dosage: FREQUENCY : 3 FREQUENCY TIME : 1 FREQUENCY TIME UNIT : DAYS
     Route: 048
     Dates: start: 2023, end: 2023
  3. METOCLOPRAMIDE [Suspect]
     Active Substance: METOCLOPRAMIDE
     Indication: Nausea
     Dosage: 10 MG IN THE MORNING
     Route: 048
     Dates: start: 2022, end: 2023
  4. ONDANSETRON [Suspect]
     Active Substance: ONDANSETRON
     Indication: Nausea
     Dosage: FREQUENCY : 3 FREQUENCY TIME : 1 FREQUENCY TIME UNIT : DAYS
     Route: 048
     Dates: start: 2023, end: 2023
  5. BENSERAZIDE\LEVODOPA [Suspect]
     Active Substance: BENSERAZIDE\LEVODOPA
     Indication: Parkinsonism
     Dosage: 100+25 MG THREE TIMES DAILY
     Route: 048
     Dates: start: 2021
  6. BENSERAZIDE\LEVODOPA [Suspect]
     Active Substance: BENSERAZIDE\LEVODOPA
     Dosage: FREQUENCY : 1 FREQUENCY TIME : 8 FREQUENCY TIME UNIT : HOURS
     Route: 048
     Dates: start: 2020, end: 2023
  7. BENSERAZIDE\LEVODOPA [Suspect]
     Active Substance: BENSERAZIDE\LEVODOPA
     Dosage: 1 DOSE UNSPECIFIED; INTERVAL: 8 HOUR
     Dates: start: 2020, end: 2023
  8. TELMISARTAN [Suspect]
     Active Substance: TELMISARTAN
     Indication: Hypertension
     Dosage: 40 MG IN THE MORNING
     Route: 048
     Dates: start: 2018, end: 2023
  9. DAPAGLIFLOZIN [Suspect]
     Active Substance: DAPAGLIFLOZIN
     Indication: Type 2 diabetes mellitus
     Dosage: 10 MG IN THE THE MORNING
     Route: 048
     Dates: start: 2018, end: 2023
  10. EMTRICITABINE\TENOFOVIR [Suspect]
     Active Substance: EMTRICITABINE\TENOFOVIR
     Indication: Prophylaxis against HIV infection
     Dosage: 300+ 200 MG IN THE MORNING
     Dates: start: 2023, end: 2023
  11. LACTULOSE [Suspect]
     Active Substance: LACTULOSE
     Indication: Constipation
     Dosage: FREQUENCY : 2 FREQUENCY TIME : 1 FREQUENCY TIME UNIT : DAYS
     Route: 048
     Dates: start: 2022, end: 2023
  12. ENTECAVIR [Suspect]
     Active Substance: ENTECAVIR
     Indication: Chronic hepatitis B
     Dosage: 0.5 MG IN THE EVENING
     Route: 048
     Dates: start: 2022
  13. TEMAZEPAM [Suspect]
     Active Substance: TEMAZEPAM
     Indication: Insomnia
     Dosage: 10 MG AT NIGHT AND 10 MG AS REQUIRED
     Dates: start: 2022, end: 2023
  14. TEMAZEPAM [Suspect]
     Active Substance: TEMAZEPAM
     Dosage: FREQUENCY : 1 FREQUENCY TIME : 1 FREQUENCY TIME UNIT : DAYS
     Dates: start: 2022, end: 2023
  15. VORTIOXETINE [Suspect]
     Active Substance: VORTIOXETINE
     Indication: Bipolar disorder
     Dosage: 30 MG IN THE MORNING
     Route: 048
     Dates: start: 2021
  16. QUETIAPINE [Concomitant]
     Active Substance: QUETIAPINE
     Indication: Bipolar disorder
     Dosage: 50 MG AT NIGHT
     Route: 048
     Dates: start: 2018
  17. linagliptin+metformin [Concomitant]
     Indication: Type 2 diabetes mellitus
     Dosage: 2.5 MG+ 1 G, BID
     Route: 048
     Dates: start: 2018
  18. linagliptin+metformin [Concomitant]
     Dosage: FREQUENCY : 1 FREQUENCY TIME : 12 FREQUENCY TIME UNIT : HOURS
  19. INSULIN GLARGINE [Concomitant]
     Active Substance: INSULIN GLARGINE
     Indication: Type 2 diabetes mellitus
     Dosage: 30 UNITS IN THE EVENING
     Route: 058
     Dates: start: 2018, end: 2023
  20. ACETAMINOPHEN [Concomitant]
     Active Substance: ACETAMINOPHEN
     Indication: Pain
     Dosage: FREQUENCY : 2 FREQUENCY TIME : 1 FREQUENCY TIME UNIT : DAYS
     Route: 048
     Dates: start: 2018
  21. TIOTROPIUM [Concomitant]
     Active Substance: TIOTROPIUM
     Indication: Chronic obstructive pulmonary disease
     Dosage: 2.5 MICROGRAM IN THE MORNING
     Dates: start: 2018
  22. BUDESONIDE\FORMOTEROL [Concomitant]
     Active Substance: BUDESONIDE\FORMOTEROL
     Indication: Chronic obstructive pulmonary disease
     Dosage: 400 + 12 MICROGRAM, BID;
     Dates: start: 2018
  23. ALBUTEROL [Concomitant]
     Active Substance: ALBUTEROL
     Indication: Chronic obstructive pulmonary disease
     Dosage: 200 MICROGRAMS UP TO 4 TIMES DAILY AS REQUIRED
     Dates: start: 2018
  24. ATORVASTATIN [Concomitant]
     Active Substance: ATORVASTATIN
     Indication: Hypercholesterolaemia
     Dosage: 80 MG AT NIGHT
     Dates: start: 2018
  25. FENOFIBRATE [Concomitant]
     Active Substance: FENOFIBRATE
     Indication: Hypercholesterolaemia
     Dosage: 145 MG IN THE MORNING
     Route: 048
     Dates: start: 2018
  26. LEVOTHYROXINE [Concomitant]
     Active Substance: LEVOTHYROXINE
     Indication: Thyroid hormone replacement therapy
     Dosage: 100 MICROGRAM DAILY MONDAY TO FRIDAY
     Dates: start: 2018
  27. LEVOTHYROXINE [Concomitant]
     Active Substance: LEVOTHYROXINE
     Dosage: 150 MICROGRAM DAILY SATURDAY AND SUNDAY
     Dates: start: 2018
  28. glucose monitoring [Concomitant]
     Indication: Product used for unknown indication
  29. aperients [Concomitant]
     Indication: Product used for unknown indication
  30. UNSPECIFIED INGREDIENT [Concomitant]
     Active Substance: UNSPECIFIED INGREDIENT
     Indication: Product used for unknown indication

REACTIONS (10)
  - Starvation [Unknown]
  - Euglycaemic diabetic ketoacidosis [Unknown]
  - Acute kidney injury [Recovered/Resolved]
  - Dehydration [Unknown]
  - Concomitant disease aggravated [Recovering/Resolving]
  - Hypophagia [Unknown]
  - Fall [Unknown]
  - Mobility decreased [Unknown]
  - Nausea [Recovering/Resolving]
  - Nephropathy toxic [Unknown]

NARRATIVE: CASE EVENT DATE: 20200101
